FAERS Safety Report 4322465-6 (Version None)
Quarter: 2004Q1

REPORT INFORMATION
  Report Type: 
  Country: None (occurrence: None)
  Receive Date: 20040323
  Receipt Date: 20040323
  Transmission Date: 20041129
  Serious: Yes (Other)
  Sender: FDA-Public Use
  Company Number: None

PATIENT
  Age: 29 Year
  Sex: Female
  Weight: 62.1428 kg

DRUGS (1)
  1. TEGRETOL [Suspect]
     Indication: BIPOLAR DISORDER
     Dosage: 600MG Q HS ORAL
     Route: 048
     Dates: start: 20031101, end: 20040322

REACTIONS (3)
  - CONTUSION [None]
  - INFLAMMATION [None]
  - PSORIASIS [None]
